FAERS Safety Report 22172804 (Version 1)
Quarter: 2023Q2

REPORT INFORMATION
  Report Type: Spontaneous
  Country: US (occurrence: None)
  Receive Date: 20230403
  Receipt Date: 20230403
  Transmission Date: 20230721
  Serious: Yes (Hospitalization, Disabling)
  Sender: FDA-Public Use
  Company Number: None

PATIENT
  Age: 61 Year
  Sex: Male
  Weight: 77.4 kg

DRUGS (1)
  1. LEVOFLOXACIN [Suspect]
     Active Substance: LEVOFLOXACIN
     Indication: Urinary tract infection
     Dosage: OTHER QUANTITY : 1 TABLET(S);?FREQUENCY : DAILY;?
     Route: 048

REACTIONS (8)
  - Rash [None]
  - Peripheral swelling [None]
  - Pain in extremity [None]
  - Arthralgia [None]
  - Dysstasia [None]
  - Gait disturbance [None]
  - Musculoskeletal disorder [None]
  - Tendonitis [None]

NARRATIVE: CASE EVENT DATE: 20230316
